FAERS Safety Report 5692766-8 (Version None)
Quarter: 2008Q2

REPORT INFORMATION
  Report Type: 
  Country: None (occurrence: None)
  Receive Date: 20080401
  Receipt Date: 20080319
  Transmission Date: 20081010
  Serious: Yes (Other)
  Sender: FDA-Public Use
  Company Number: 232701J08USA

PATIENT
  Age: 42 Year
  Sex: Female
  Weight: 99.7913 kg

DRUGS (4)
  1. REBIF [Suspect]
     Indication: MULTIPLE SCLEROSIS
     Dosage: 44 MCG, 3 IN 1 WEEKS, SUBCUTANEOUS
     Route: 058
     Dates: start: 20050725
  2. NEURONTIN [Concomitant]
  3. DETROL LA [Concomitant]
  4. MOBIC [Concomitant]

REACTIONS (5)
  - ERYTHEMA [None]
  - INJECTION SITE BRUISING [None]
  - INTERVERTEBRAL DISC DEGENERATION [None]
  - NERVE COMPRESSION [None]
  - SCIATICA [None]
